FAERS Safety Report 24318557 (Version 2)
Quarter: 2024Q3

REPORT INFORMATION
  Report Type: Spontaneous
  Country: US (occurrence: US)
  Receive Date: 20240913
  Receipt Date: 20240913
  Transmission Date: 20241017
  Serious: Yes (Life-Threatening, Hospitalization)
  Sender: VIFOR
  Company Number: US-Vifor (International) Inc.-VIT-2024-08117

PATIENT
  Age: 52 Year
  Sex: Male
  Weight: 66.5 kg

DRUGS (2)
  1. MIRCERA [Suspect]
     Active Substance: METHOXY POLYETHYLENE GLYCOL-EPOETIN BETA
     Indication: Nephrogenic anaemia
     Route: 040
     Dates: start: 20240824
  2. MIRCERA [Suspect]
     Active Substance: METHOXY POLYETHYLENE GLYCOL-EPOETIN BETA
     Dosage: ONCE
     Route: 040
     Dates: start: 20240831, end: 20240831

REACTIONS (9)
  - Drug hypersensitivity [Unknown]
  - Unresponsive to stimuli [Unknown]
  - Seizure [Unknown]
  - Respiratory failure [Unknown]
  - Pneumonia [Unknown]
  - Pleural effusion [Unknown]
  - Blood pressure decreased [Unknown]
  - Heart rate increased [Unknown]
  - Nausea [Recovering/Resolving]

NARRATIVE: CASE EVENT DATE: 20240824
